FAERS Safety Report 19264674 (Version 8)
Quarter: 2021Q4

REPORT INFORMATION
  Report Type: Report from Study
  Country: KR (occurrence: KR)
  Receive Date: 20210517
  Receipt Date: 20211026
  Transmission Date: 20220303
  Serious: Yes (Hospitalization)
  Sender: FDA-Public Use
  Company Number: KR-ROCHE-2827431

PATIENT
  Age: 40 Year
  Sex: Male
  Weight: 74.5 kg

DRUGS (44)
  1. MOSUNETUZUMAB [Suspect]
     Active Substance: MOSUNETUZUMAB
     Indication: B-cell lymphoma
     Dosage: DOSE LAST STUDY DRUG ADMIN PRIOR SAE IS 30 MG?START DATE OF MOST RECENT DOSE OF STUDY DRUG PRIOR TO
     Route: 042
     Dates: start: 20210216
  2. POLATUZUMAB VEDOTIN [Suspect]
     Active Substance: POLATUZUMAB VEDOTIN
     Indication: B-cell lymphoma
     Dosage: START DATE OF MOST RECENT DOSE OF STUDY DRUG PRIOR TO SAE IS 22/APR/2021?DOSE LAST STUDY DRUG ADMIN
     Route: 042
     Dates: start: 20210216
  3. CYCLOPHOSPHAMIDE [Suspect]
     Active Substance: CYCLOPHOSPHAMIDE
     Indication: B-cell lymphoma
     Dosage: START DATE OF MOST RECENT DOSE OF STUDY DRUG PRIOR TO SAE IS 22/APR/2021?DOSE LAST STUDY DRUG ADMIN
     Route: 042
     Dates: start: 20210216
  4. DOXORUBICIN [Suspect]
     Active Substance: DOXORUBICIN
     Indication: B-cell lymphoma
     Dosage: START DATE OF MOST RECENT DOSE OF STUDY DRUG PRIOR TO SAE IS 22/APR/2021?DOSE LAST STUDY DRUG ADMIN
     Route: 042
     Dates: start: 20210216
  5. PREDNISONE [Suspect]
     Active Substance: PREDNISONE
     Indication: B-cell lymphoma
     Dosage: START DATE OF MOST RECENT DOSE OF STUDY DRUG PRIOR TO SAE: 26/APR/2021?DOSE LAST STUDY DRUG ADMIN PR
     Route: 048
     Dates: start: 20210216
  6. KETOROLAC [Concomitant]
     Active Substance: KETOROLAC TROMETHAMINE
     Route: 042
     Dates: start: 20210507, end: 20210507
  7. ACYCLOVIR [Concomitant]
     Active Substance: ACYCLOVIR
     Route: 042
     Dates: start: 20210507, end: 20210514
  8. ACYCLOVIR [Concomitant]
     Active Substance: ACYCLOVIR
     Route: 047
     Dates: start: 20210508, end: 20210512
  9. ACYCLOVIR [Concomitant]
     Active Substance: ACYCLOVIR
     Route: 048
     Dates: start: 20210515, end: 20210522
  10. HYALURONATE SODIUM [Concomitant]
     Active Substance: HYALURONATE SODIUM
     Route: 047
     Dates: start: 20210508, end: 20210512
  11. MOXIFLOXACIN [Concomitant]
     Active Substance: MOXIFLOXACIN
     Route: 047
     Dates: start: 20210508, end: 20210722
  12. MUPIROCIN [Concomitant]
     Active Substance: MUPIROCIN
     Route: 061
     Dates: start: 20210510, end: 20210620
  13. GANCICLOVIR [Concomitant]
     Active Substance: GANCICLOVIR
     Route: 047
     Dates: start: 20210512, end: 20210620
  14. PREDNISOLONE [Concomitant]
     Active Substance: PREDNISOLONE
     Route: 047
     Dates: start: 20210512, end: 20210603
  15. SULFAMETHOXAZOLE\TRIMETHOPRIM [Concomitant]
     Active Substance: SULFAMETHOXAZOLE\TRIMETHOPRIM
     Route: 048
     Dates: start: 20210601
  16. SULFAMETHOXAZOLE\TRIMETHOPRIM [Concomitant]
     Active Substance: SULFAMETHOXAZOLE\TRIMETHOPRIM
     Route: 048
     Dates: start: 20210302, end: 20210421
  17. FLUOROMETHOLONE [Concomitant]
     Active Substance: FLUOROMETHOLONE
     Route: 047
     Dates: start: 20210604, end: 20210620
  18. FLUOROMETHOLONE [Concomitant]
     Active Substance: FLUOROMETHOLONE
     Route: 047
     Dates: start: 20210621, end: 20210622
  19. AKYNZEO [Concomitant]
     Active Substance: NETUPITANT\PALONOSETRON HYDROCHLORIDE
     Dosage: 300MG/0.5MG
     Route: 048
     Dates: start: 20210401, end: 20210401
  20. AKYNZEO [Concomitant]
     Active Substance: NETUPITANT\PALONOSETRON HYDROCHLORIDE
     Dosage: 300MG/0.5MG
     Route: 048
     Dates: start: 20210422, end: 20210422
  21. AKYNZEO [Concomitant]
     Active Substance: NETUPITANT\PALONOSETRON HYDROCHLORIDE
     Dosage: 300MG/0.5MG
     Route: 048
     Dates: start: 20210622, end: 20210622
  22. AKYNZEO [Concomitant]
     Active Substance: NETUPITANT\PALONOSETRON HYDROCHLORIDE
     Dosage: 300MG/0.5MG
     Route: 048
     Dates: start: 20210713, end: 20210713
  23. AKYNZEO [Concomitant]
     Active Substance: NETUPITANT\PALONOSETRON HYDROCHLORIDE
     Dosage: 1 CAPSULE
     Route: 048
     Dates: start: 20210804, end: 20210804
  24. ACETAMINOPHEN [Concomitant]
     Active Substance: ACETAMINOPHEN
     Route: 048
     Dates: start: 20210401, end: 20210401
  25. ACETAMINOPHEN [Concomitant]
     Active Substance: ACETAMINOPHEN
     Route: 048
     Dates: start: 20210422, end: 20210422
  26. ACETAMINOPHEN [Concomitant]
     Active Substance: ACETAMINOPHEN
     Route: 048
     Dates: start: 20210622, end: 20210622
  27. ACETAMINOPHEN [Concomitant]
     Active Substance: ACETAMINOPHEN
     Route: 048
     Dates: start: 20210713, end: 20210713
  28. ACETAMINOPHEN [Concomitant]
     Active Substance: ACETAMINOPHEN
     Route: 048
     Dates: start: 20210803, end: 20210803
  29. CHLORPHENIRAMINE MALEATE [Concomitant]
     Active Substance: CHLORPHENIRAMINE MALEATE
     Route: 042
     Dates: start: 20210401, end: 20210401
  30. CHLORPHENIRAMINE MALEATE [Concomitant]
     Active Substance: CHLORPHENIRAMINE MALEATE
     Route: 042
     Dates: start: 20210422, end: 20210422
  31. CHLORPHENIRAMINE MALEATE [Concomitant]
     Active Substance: CHLORPHENIRAMINE MALEATE
     Route: 042
     Dates: start: 20210622, end: 20210622
  32. CHLORPHENIRAMINE MALEATE [Concomitant]
     Active Substance: CHLORPHENIRAMINE MALEATE
     Route: 042
     Dates: start: 20210713, end: 20210713
  33. CHLORPHENIRAMINE MALEATE [Concomitant]
     Active Substance: CHLORPHENIRAMINE MALEATE
     Route: 042
     Dates: start: 20210803, end: 20210803
  34. FAMOTIDINE [Concomitant]
     Active Substance: FAMOTIDINE
     Route: 048
     Dates: start: 20210401, end: 20210405
  35. FAMOTIDINE [Concomitant]
     Active Substance: FAMOTIDINE
     Route: 048
     Dates: start: 20210422, end: 20210422
  36. FAMOTIDINE [Concomitant]
     Active Substance: FAMOTIDINE
     Route: 048
     Dates: start: 20210622, end: 20210626
  37. FAMOTIDINE [Concomitant]
     Active Substance: FAMOTIDINE
     Route: 048
     Dates: start: 20210713, end: 20210717
  38. FAMOTIDINE [Concomitant]
     Active Substance: FAMOTIDINE
     Route: 048
     Dates: start: 20210803, end: 20210807
  39. PEGTEOGRASTIM [Concomitant]
     Active Substance: PEGTEOGRASTIM
     Route: 058
     Dates: start: 20210402, end: 20210402
  40. PEGTEOGRASTIM [Concomitant]
     Active Substance: PEGTEOGRASTIM
     Route: 058
     Dates: start: 20210423, end: 20210423
  41. PEGTEOGRASTIM [Concomitant]
     Active Substance: PEGTEOGRASTIM
     Route: 058
     Dates: start: 20210623, end: 20210623
  42. PEGTEOGRASTIM [Concomitant]
     Active Substance: PEGTEOGRASTIM
     Route: 058
     Dates: start: 20210714, end: 20210714
  43. PEGTEOGRASTIM [Concomitant]
     Active Substance: PEGTEOGRASTIM
     Route: 058
     Dates: start: 20210804, end: 20210804
  44. LORAZEPAM [Concomitant]
     Active Substance: LORAZEPAM
     Route: 048
     Dates: start: 20210408, end: 20210411

REACTIONS (1)
  - Herpes zoster [Recovered/Resolved]

NARRATIVE: CASE EVENT DATE: 20210501
